FAERS Safety Report 13759495 (Version 1)
Quarter: 2017Q3

REPORT INFORMATION
  Report Type: Spontaneous
  Country: US (occurrence: US)
  Receive Date: 20170717
  Receipt Date: 20170717
  Transmission Date: 20171127
  Serious: Yes (Other)
  Sender: FDA-Public Use
  Company Number: None

PATIENT
  Age: 27 Year
  Sex: Male
  Weight: 72.58 kg

DRUGS (1)
  1. SUBOXONE [Suspect]
     Active Substance: BUPRENORPHINE HYDROCHLORIDE\NALOXONE HYDROCHLORIDE
     Indication: DRUG DEPENDENCE
     Dosage: DOSE - 8-2 MG ONCE DAILY?ROUTE - ORALLY BY FILM
     Route: 048
     Dates: start: 20170714, end: 20170717

REACTIONS (1)
  - Nausea [None]

NARRATIVE: CASE EVENT DATE: 20170717
